FAERS Safety Report 26087914 (Version 1)
Quarter: 2025Q4

REPORT INFORMATION
  Report Type: Other
  Country: US (occurrence: US)
  Receive Date: 20251125
  Receipt Date: 20251125
  Transmission Date: 20260117
  Serious: Yes (Other)
  Sender: FAGRON COMPOUNDING SERVICES D/B/A FAGRON STERILE SERVICES, WICHITA, KS
  Company Number: US-Fagron Sterile Services-2189287

PATIENT

DRUGS (1)
  1. PHENYLEPHRINE [Suspect]
     Active Substance: PHENYLEPHRINE
     Dates: start: 20251113

REACTIONS (1)
  - Drug ineffective [Unknown]

NARRATIVE: CASE EVENT DATE: 20251113
